FAERS Safety Report 8872738 (Version 1)
Quarter: 2012Q4

REPORT INFORMATION
  Report Type: 
  Country: US (occurrence: US)
  Receive Date: 20121026
  Receipt Date: 20121026
  Transmission Date: 20130627
  Serious: No
  Sender: FDA-Public Use
  Company Number: US-AMGEN-USASP2012051145

PATIENT
  Age: 33 Year
  Sex: Female
  Weight: 113.38 kg

DRUGS (7)
  1. ENBREL [Suspect]
     Indication: PRODUCT USED FOR UNKNOWN INDICATION
     Dosage: 50 mg, qwk
     Route: 058
  2. CYMBALTA [Concomitant]
     Dosage: 30 mg, UNK
  3. LEVOTHYROXIN [Concomitant]
     Dosage: 175 mug, UNK
  4. LOSARTAN POTASSIUM [Concomitant]
     Dosage: 50 mg, UNK
  5. FLEXERIL                           /00428402/ [Concomitant]
     Dosage: 5 mg, UNK
  6. SULFASALAZIN [Concomitant]
     Dosage: 500 mg, UNK
  7. TRAMADOL HCL [Concomitant]
     Dosage: 300 mg, UNK

REACTIONS (3)
  - Injection site warmth [Unknown]
  - Injection site erythema [Unknown]
  - Injection site swelling [Unknown]
